FAERS Safety Report 8415474-9 (Version None)
Quarter: 2012Q2

REPORT INFORMATION
  Report Type: 
  Country: None (occurrence: None)
  Receive Date: 20120606
  Receipt Date: 20120601
  Transmission Date: 20120825
  Serious: Yes (Other)
  Sender: FDA-Public Use
  Company Number: PHHY2012AR047750

PATIENT
  Sex: Female

DRUGS (6)
  1. AMLODIPINE [Concomitant]
  2. ASPIRIN [Concomitant]
  3. CLOPIDOGREL [Concomitant]
  4. DIURETICS [Concomitant]
  5. ATENOLOL [Concomitant]
  6. DIOVAN [Suspect]
     Indication: HYPERTENSION
     Dosage: 320 MG, DAILY
     Dates: start: 20100101

REACTIONS (2)
  - ARTERIAL OCCLUSIVE DISEASE [None]
  - OSTEOARTHRITIS [None]
